FAERS Safety Report 21256329 (Version 1)
Quarter: 2022Q3

REPORT INFORMATION
  Report Type: Report from Study
  Country: US (occurrence: US)
  Receive Date: 20220825
  Receipt Date: 20220825
  Transmission Date: 20221027
  Serious: No
  Sender: FDA-Public Use
  Company Number: US-ACADIA PHARMACEUTICALS INC.-ACA-2022-PIM-002688

PATIENT
  Age: 74 Year
  Sex: Female

DRUGS (13)
  1. NUPLAZID [Suspect]
     Active Substance: PIMAVANSERIN TARTRATE
     Indication: Parkinson^s disease psychosis
     Dosage: 34 MILLIGRAM, QD
     Route: 065
     Dates: start: 20220727, end: 20220803
  2. NUPLAZID [Suspect]
     Active Substance: PIMAVANSERIN TARTRATE
     Dosage: 34 MILLIGRAM, QD
     Route: 065
     Dates: end: 20220809
  3. LORAZEPAM [Concomitant]
     Active Substance: LORAZEPAM
  4. DULOXETINE HYDROCHLORIDE [Concomitant]
     Active Substance: DULOXETINE HYDROCHLORIDE
  5. ARIPIPRAZOLE [Concomitant]
     Active Substance: ARIPIPRAZOLE
  6. BUSPIRONE HCL [Concomitant]
     Active Substance: BUSPIRONE HYDROCHLORIDE
  7. MECLIZINE HYDROCHLORIDE [Concomitant]
     Active Substance: MECLIZINE HYDROCHLORIDE
     Dosage: 25
     Dates: start: 20220223
  8. TYLENOL [Concomitant]
     Active Substance: ACETAMINOPHEN
  9. GABAPENTIN [Concomitant]
     Active Substance: GABAPENTIN
     Dosage: TWO TIMES
  10. BISACODYL [Concomitant]
     Active Substance: BISACODYL
  11. REQUIP [Concomitant]
     Active Substance: ROPINIROLE HYDROCHLORIDE
     Dosage: 0.25
     Dates: start: 20220223
  12. MIRAPEX [Concomitant]
     Active Substance: PRAMIPEXOLE DIHYDROCHLORIDE
     Dosage: 0.25
     Dates: start: 20220205
  13. CELEBREX [Concomitant]
     Active Substance: CELECOXIB
     Dosage: 200
     Dates: start: 20211214

REACTIONS (4)
  - Feeding disorder [Recovered/Resolved]
  - Nasal congestion [Recovered/Resolved]
  - Dysphagia [Recovered/Resolved]
  - Throat tightness [Recovered/Resolved]

NARRATIVE: CASE EVENT DATE: 20220801
